FAERS Safety Report 14202065 (Version 2)
Quarter: 2018Q1

REPORT INFORMATION
  Report Type: Spontaneous
  Country: US (occurrence: US)
  Receive Date: 20171117
  Receipt Date: 20180104
  Transmission Date: 20180508
  Serious: Yes (Other)
  Sender: FDA-Public Use
  Company Number: US-ALLERGAN-1764687US

PATIENT
  Age: 41 Year
  Sex: Female

DRUGS (1)
  1. ACZONE [Suspect]
     Active Substance: DAPSONE
     Indication: RASH
     Dosage: UNK
     Route: 061
     Dates: start: 201608

REACTIONS (4)
  - Depression [Unknown]
  - Drug dose omission [Unknown]
  - Off label use [Unknown]
  - Suicidal ideation [Unknown]
